FAERS Safety Report 17735101 (Version 1)
Quarter: 2020Q2

REPORT INFORMATION
  Report Type: Spontaneous
  Country: FR (occurrence: FR)
  Receive Date: 20200501
  Receipt Date: 20200501
  Transmission Date: 20200714
  Serious: Yes (Hospitalization)
  Sender: FDA-Public Use
  Company Number: FR-009507513-2004FRA007900

PATIENT
  Age: 44 Year
  Sex: Female

DRUGS (3)
  1. XYLOCAINE [Concomitant]
     Active Substance: LIDOCAINE HYDROCHLORIDE
     Indication: ARTHROGRAM
     Route: 014
     Dates: start: 20180307, end: 20180307
  2. IOPAMIRON [Suspect]
     Active Substance: IOPAMIDOL
     Indication: ARTHROGRAM
     Dosage: 4.6 GRAM, ONCE
     Route: 014
     Dates: start: 20180307, end: 20180307
  3. DIPROSTENE [Suspect]
     Active Substance: BETAMETHASONE DIPROPIONATE\BETAMETHASONE SODIUM PHOSPHATE
     Indication: JOINT INJECTION
     Dosage: 1 AMPULE
     Route: 014
     Dates: start: 20180307, end: 20180307

REACTIONS (1)
  - Anaphylactic shock [Recovered/Resolved]

NARRATIVE: CASE EVENT DATE: 20180307
